FAERS Safety Report 18750853 (Version 3)
Quarter: 2021Q1

REPORT INFORMATION
  Report Type: Spontaneous
  Country: US (occurrence: US)
  Receive Date: 20210118
  Receipt Date: 20210318
  Transmission Date: 20210419
  Serious: No
  Sender: FDA-Public Use
  Company Number: US-ASTRAZENECA-2021A004989

PATIENT
  Sex: Female
  Weight: 76.7 kg

DRUGS (6)
  1. FLUTICASONE PROPIONATE. [Concomitant]
     Active Substance: FLUTICASONE PROPIONATE
     Dosage: DAILY
  2. GABAPENTIN. [Concomitant]
     Active Substance: GABAPENTIN
  3. BYDUREON BCISE [Suspect]
     Active Substance: EXENATIDE
     Indication: DIABETES MELLITUS
     Route: 065
     Dates: start: 202012
  4. METFORMIN [Concomitant]
     Active Substance: METFORMIN HYDROCHLORIDE
  5. CLOPIDOGREL [Concomitant]
     Active Substance: CLOPIDOGREL BISULFATE
  6. ATORVASTIATN [Concomitant]
     Indication: BLOOD CHOLESTEROL

REACTIONS (4)
  - Injection site injury [Unknown]
  - Device leakage [Unknown]
  - Wrong technique in device usage process [Unknown]
  - Contusion [Unknown]
